FAERS Safety Report 8907573 (Version 2)
Quarter: 2012Q4

REPORT INFORMATION
  Report Type: 
  Country: US (occurrence: US)
  Receive Date: 20121114
  Receipt Date: 20121231
  Transmission Date: 20130627
  Serious: No
  Sender: FDA-Public Use
  Company Number: US-BIOGENIDEC-2012BI050311

PATIENT
  Sex: Female

DRUGS (1)
  1. TYSABRI [Suspect]
     Indication: MULTIPLE SCLEROSIS
     Route: 042
     Dates: start: 20110420

REACTIONS (6)
  - Depression [Not Recovered/Not Resolved]
  - Diplegia [Recovered/Resolved]
  - Weight decreased [Unknown]
  - Muscle spasticity [Not Recovered/Not Resolved]
  - Suicidal ideation [Recovered/Resolved]
  - Disturbance in attention [Not Recovered/Not Resolved]
